FAERS Safety Report 12939285 (Version 45)
Quarter: 2022Q1

REPORT INFORMATION
  Report Type: Spontaneous
  Country: US (occurrence: US)
  Receive Date: 20161115
  Receipt Date: 20220114
  Transmission Date: 20220423
  Serious: Yes (Other)
  Sender: FDA-Public Use
  Company Number: US-PFIZER INC-2016527148

PATIENT
  Age: 73 Year
  Sex: Female
  Weight: 73 kg

DRUGS (43)
  1. LYRICA [Suspect]
     Active Substance: PREGABALIN
     Indication: Trigeminal neuralgia
     Dosage: 75 MG, 3X/DAY
     Route: 048
     Dates: start: 201607, end: 2016
  2. LYRICA [Suspect]
     Active Substance: PREGABALIN
     Indication: Arthritis
     Dosage: 150 MG, 2X/DAY
     Route: 048
     Dates: start: 20161116
  3. LYRICA [Suspect]
     Active Substance: PREGABALIN
     Indication: Arthralgia
     Dosage: 100 MG, 2X/DAY
     Route: 048
     Dates: start: 20170216, end: 2017
  4. LYRICA [Suspect]
     Active Substance: PREGABALIN
     Indication: Neuropathy peripheral
     Dosage: 75 MG, 2X/DAY
     Route: 048
     Dates: start: 2017, end: 2017
  5. LYRICA [Suspect]
     Active Substance: PREGABALIN
     Indication: Pain in extremity
     Dosage: 100 MG, 2X/DAY
     Route: 048
     Dates: start: 20170829, end: 2017
  6. LYRICA [Suspect]
     Active Substance: PREGABALIN
     Indication: Pain
     Dosage: 100 MG, 3X/DAY
     Route: 048
     Dates: start: 2017, end: 2017
  7. LYRICA [Suspect]
     Active Substance: PREGABALIN
     Indication: Fibromyalgia
     Dosage: 150 MG, 2X/DAY
     Route: 048
     Dates: start: 20171005
  8. LYRICA [Suspect]
     Active Substance: PREGABALIN
     Indication: Dislocation of vertebra
     Dosage: 150 MG, 3X/DAY
     Route: 048
  9. LYRICA [Suspect]
     Active Substance: PREGABALIN
     Indication: Neuropathy peripheral
     Dosage: 75 MG, 2X/DAY
     Route: 048
  10. LYRICA [Suspect]
     Active Substance: PREGABALIN
     Dosage: 375 MG, DAILY
     Route: 048
  11. LYRICA [Suspect]
     Active Substance: PREGABALIN
     Dosage: 75 MG, 1X/DAY
     Route: 048
  12. LYRICA [Suspect]
     Active Substance: PREGABALIN
     Dosage: 375 MG, DAILY
     Route: 048
  13. LYRICA [Suspect]
     Active Substance: PREGABALIN
     Dosage: 150 MG, 2X/DAY
     Route: 048
  14. LYRICA [Suspect]
     Active Substance: PREGABALIN
     Dosage: 75 MG, 1X/DAY
     Route: 048
  15. LYRICA [Suspect]
     Active Substance: PREGABALIN
     Dosage: 150 MG, 2X/DAY
     Route: 048
  16. LYRICA [Suspect]
     Active Substance: PREGABALIN
     Dosage: 75 MG, DAILY (TAKE 1 CAPSULE BY MOUTH DAILY IN ADDITION TO LYRICA 150 MG BID (TWO TIMES A DAY))
     Route: 048
  17. LYRICA [Suspect]
     Active Substance: PREGABALIN
     Dosage: 150 MG, 2X/DAY (150MG TWICE A DAY; 75MG ONCE A DAY, IN THE MIDDLE OF THE DAY)
     Dates: start: 20161116
  18. LYRICA [Suspect]
     Active Substance: PREGABALIN
     Dosage: 75 MG, 1X/DAY (150MG TWICE A DAY; 75MG ONCE A DAY, IN THE MIDDLE OF THE DAY)
     Dates: start: 2016
  19. ASPIRIN [Concomitant]
     Active Substance: ASPIRIN
     Indication: Cardiac disorder
     Dosage: 1 DF, 1X/DAY
     Route: 048
  20. ASPIRIN [Concomitant]
     Active Substance: ASPIRIN
     Dosage: 81 MG, 1X/DAY (TAKE ONCE DAILY BY MOUTH)
     Route: 048
  21. ASPIRIN [Concomitant]
     Active Substance: ASPIRIN
     Dosage: 81 MG, DAILY
     Route: 048
     Dates: start: 2010
  22. CYMBALTA [Concomitant]
     Active Substance: DULOXETINE HYDROCHLORIDE
     Dosage: UNK
  23. GABAPENTIN [Concomitant]
     Active Substance: GABAPENTIN
     Dosage: UNK
  24. INDERAL [Concomitant]
     Active Substance: PROPRANOLOL HYDROCHLORIDE
     Indication: Tremor
     Dosage: 10 MG, 2X/DAY
  25. LAMICTAL [Concomitant]
     Active Substance: LAMOTRIGINE
     Indication: Bipolar disorder
     Dosage: 25 MG, 2X/DAY
     Route: 048
     Dates: start: 2002
  26. LAMICTAL [Concomitant]
     Active Substance: LAMOTRIGINE
     Indication: Bipolar II disorder
     Dosage: 100 MG, 2X/DAY
     Route: 048
  27. LAMICTAL [Concomitant]
     Active Substance: LAMOTRIGINE
     Indication: Depression
     Dosage: 150 MG, 2X/DAY (TAKE TWICE DAILY BY MOUTH)
     Route: 048
     Dates: start: 2003
  28. LAMICTAL [Concomitant]
     Active Substance: LAMOTRIGINE
     Indication: Seizure
  29. LASIX [Concomitant]
     Active Substance: FUROSEMIDE
     Dosage: UNK
  30. LIORESAL [Concomitant]
     Active Substance: BACLOFEN
     Indication: Muscle spasms
     Dosage: 20 MG, 2X/DAY
     Route: 048
  31. MIRAPEX [Concomitant]
     Active Substance: PRAMIPEXOLE DIHYDROCHLORIDE
     Indication: Restless legs syndrome
     Dosage: 0.125 MG, 1X/DAY (ONE AT BEDTIME)
     Route: 048
     Dates: start: 2016
  32. OXYCODONE [Concomitant]
     Active Substance: OXYCODONE
     Indication: Abdominal pain
     Dosage: 5 MG, 2X/DAY (EVERY 12 HOURS)
     Route: 048
     Dates: start: 2014
  33. OXYCODONE [Concomitant]
     Active Substance: OXYCODONE
     Indication: Trigeminal neuralgia
  34. PENLAC [Concomitant]
     Active Substance: CICLOPIROX
     Dosage: UNK
     Route: 061
     Dates: start: 2010
  35. PEPCID [Concomitant]
     Active Substance: FAMOTIDINE
     Dosage: 40 MG, 2X/DAY
     Route: 048
  36. ROXICODONE [Concomitant]
     Active Substance: OXYCODONE HYDROCHLORIDE
     Indication: Pain
     Dosage: 5 MG, AS NEEDED (EVERY 12 HOURS)
     Route: 048
     Dates: start: 2010, end: 201602
  37. VITAMIN D [Concomitant]
     Active Substance: VITAMIN D NOS
     Dosage: 50000 IU, WEEKLY
     Route: 048
  38. VITAMIN D3 [Concomitant]
     Active Substance: CHOLECALCIFEROL
     Dosage: 1000 IU, 2X/DAY
     Route: 048
     Dates: start: 2010
  39. VOLTAREN [Concomitant]
     Active Substance: DICLOFENAC SODIUM
     Indication: Pain
     Dosage: 1 G, 2X/DAY
     Route: 061
     Dates: start: 2010
  40. XANAX [Concomitant]
     Active Substance: ALPRAZOLAM
     Indication: Anxiety
     Dosage: UNK
     Route: 048
     Dates: start: 2004
  41. XANAX [Concomitant]
     Active Substance: ALPRAZOLAM
     Dosage: 0.5 MG, 2X/DAY(HALF AT NIGHT BEFORE BED,TAKES OTHER HALF DURING THE DAY)
     Route: 048
     Dates: start: 2016
  42. ZOFRAN [Concomitant]
     Active Substance: ONDANSETRON HYDROCHLORIDE
     Indication: Nausea
     Dosage: UNK
     Route: 048
     Dates: start: 2013
  43. ZOFRAN [Concomitant]
     Active Substance: ONDANSETRON HYDROCHLORIDE
     Indication: Gastric disorder
     Dosage: 1 DF, 1X/DAY
     Route: 048
     Dates: start: 2015

REACTIONS (48)
  - Upper limb fracture [Recovered/Resolved with Sequelae]
  - Fall [Recovered/Resolved with Sequelae]
  - Ligament rupture [Recovering/Resolving]
  - Neuropathy peripheral [Recovering/Resolving]
  - Blindness [Unknown]
  - COVID-19 [Unknown]
  - Drug ineffective [Unknown]
  - Intentional product misuse [Unknown]
  - Product dose omission issue [Unknown]
  - Product prescribing error [Unknown]
  - Therapeutic product effect delayed [Unknown]
  - Arthralgia [Unknown]
  - Pain in extremity [Not Recovered/Not Resolved]
  - Arthralgia [Not Recovered/Not Resolved]
  - Hypoaesthesia [Unknown]
  - Pain [Recovering/Resolving]
  - Peripheral swelling [Recovering/Resolving]
  - Vertigo [Unknown]
  - Tremor [Not Recovered/Not Resolved]
  - Gait disturbance [Unknown]
  - Nervousness [Unknown]
  - Musculoskeletal discomfort [Unknown]
  - Eye pain [Unknown]
  - Feeling abnormal [Unknown]
  - Confusional state [Unknown]
  - Head injury [Unknown]
  - Memory impairment [Unknown]
  - Alopecia [Not Recovered/Not Resolved]
  - Condition aggravated [Not Recovered/Not Resolved]
  - Limb discomfort [Unknown]
  - Erythema [Unknown]
  - Skin discolouration [Unknown]
  - Dysgraphia [Not Recovered/Not Resolved]
  - Abdominal pain [Recovering/Resolving]
  - Vision blurred [Unknown]
  - Motor dysfunction [Unknown]
  - Dry skin [Unknown]
  - Balance disorder [Unknown]
  - Bradyphrenia [Unknown]
  - Illness [Unknown]
  - Dizziness [Unknown]
  - Speech disorder [Unknown]
  - Blood pressure increased [Unknown]
  - Amnesia [Unknown]
  - Hypertension [Unknown]
  - Heart rate decreased [Unknown]
  - Crying [Unknown]
  - Expired product administered [Unknown]

NARRATIVE: CASE EVENT DATE: 20160101
